FAERS Safety Report 8347891-X (Version None)
Quarter: 2012Q2

REPORT INFORMATION
  Report Type: 
  Country: None (occurrence: None)
  Receive Date: 20120507
  Receipt Date: 20120427
  Transmission Date: 20120825
  Serious: Yes (Life-Threatening)
  Sender: FDA-Public Use
  Company Number: GER/UKI/12/0024115

PATIENT
  Age: 54 Year
  Sex: Male
  Weight: 128.1 kg

DRUGS (8)
  1. AMLODIPINE [Suspect]
     Indication: PRODUCT USED FOR UNKNOWN INDICATION
     Dosage: 10 MG, 1 IN 1 D, ORAL
     Route: 048
  2. LITHIUM CARBONATE [Suspect]
     Indication: PRODUCT USED FOR UNKNOWN INDICATION
     Dosage: 400 MCG, 1 IN 1D, ORAL
     Route: 048
  3. SENNA-MINT WAF [Suspect]
     Indication: PRODUCT USED FOR UNKNOWN INDICATION
     Dosage: 7.5 MG, 1 IN 1 D, ORAL
     Route: 048
  4. ACETAMINOPHEN [Suspect]
     Indication: PRODUCT USED FOR UNKNOWN INDICATION
     Dosage: 1 GM, 4 IN 1 D, ORAL
     Route: 048
  5. QUETIAPINE FUMARATE [Suspect]
     Indication: PRODUCT USED FOR UNKNOWN INDICATION
     Dosage: 300 MG, 1 IN 1 D, ORAL
     Route: 048
  6. DABIGATRAN ETEXILATE (DABIGATRAN ETEXILATE) [Suspect]
     Indication: THROMBOSIS PROPHYLAXIS
     Dosage: 220 MG, 1 IN 1 D, ORAL
     Route: 048
     Dates: start: 20120327, end: 20120422
  7. DESLORATADINE [Suspect]
     Indication: PRODUCT USED FOR UNKNOWN INDICATION
     Dosage: 5 MG, 1 IN 1 D, ORAL
     Route: 048
  8. CODEINE SULFATE [Suspect]
     Indication: PRODUCT USED FOR UNKNOWN INDICATION
     Dosage: 60 MG, 4 IN 1 D, ORAL
     Route: 048

REACTIONS (1)
  - DEEP VEIN THROMBOSIS [None]
